FAERS Safety Report 6006134-2 (Version None)
Quarter: 2008Q4

REPORT INFORMATION
  Report Type: 
  Country: None (occurrence: None)
  Receive Date: 20081217
  Receipt Date: 20071205
  Transmission Date: 20090506
  Serious: No
  Sender: FDA-Public Use
  Company Number: US-BAUSCH-2007BL004392

PATIENT
  Sex: Male

DRUGS (2)
  1. ZYLET [Suspect]
     Indication: OCULAR HYPERAEMIA
     Route: 047
     Dates: start: 20071125, end: 20071202
  2. ZYLET [Suspect]
     Route: 047
     Dates: start: 20071203

REACTIONS (5)
  - CONDITION AGGRAVATED [None]
  - DRUG HYPERSENSITIVITY [None]
  - EYE DISCHARGE [None]
  - EYE PRURITUS [None]
  - EYELID OEDEMA [None]
